FAERS Safety Report 12584720 (Version 1)
Quarter: 2016Q3

REPORT INFORMATION
  Report Type: Spontaneous
  Country: US (occurrence: US)
  Receive Date: 20160722
  Receipt Date: 20160722
  Transmission Date: 20161109
  Serious: No
  Sender: FDA-Public Use
  Company Number: US-VIFOR (INTERNATIONAL) INC.-VIT-2016-03436

PATIENT
  Age: 56 Year
  Sex: Female

DRUGS (1)
  1. VELPHORO [Suspect]
     Active Substance: FERRIC OXYHYDROXIDE
     Indication: HYPERPHOSPHATAEMIA
     Dosage: 2 X 500 MG TABLETS WITH EACH MEAL (3 MEALS PER DAY)
     Route: 048

REACTIONS (1)
  - Migraine [Recovered/Resolved]
